FAERS Safety Report 8100190-3 (Version None)
Quarter: 2012Q1

REPORT INFORMATION
  Report Type: 
  Country: None (occurrence: None)
  Receive Date: 20120129
  Receipt Date: 20111118
  Transmission Date: 20120608
  Serious: No
  Sender: FDA-Public Use
  Company Number: US-ABBOTT-11P-163-0849368-00

PATIENT
  Age: 22 Year
  Sex: Female

DRUGS (16)
  1. HUMIRA [Suspect]
  2. ORTHO TRI-CYCLEN LO [Concomitant]
     Indication: ORAL CONTRACEPTION
     Dosage: LOW DAILY
  3. HUMIRA [Suspect]
     Dates: start: 20110818, end: 20110818
  4. ARANESP [Concomitant]
     Indication: RED BLOOD CELL COUNT INCREASED
     Dosage: EVERY 2 WEEKS UNTIL RBCS } 10
  5. IRON [Concomitant]
     Indication: ANAEMIA
     Dosage: INFUSIONS MONTHLY
     Route: 042
  6. CALTRATE [Concomitant]
     Indication: PRODUCT USED FOR UNKNOWN INDICATION
  7. FOLIC ACID [Concomitant]
     Indication: PRODUCT USED FOR UNKNOWN INDICATION
  8. MULTI-VITAMIN [Concomitant]
     Indication: PRODUCT USED FOR UNKNOWN INDICATION
  9. MERCAPTOPURINE [Concomitant]
     Indication: PRODUCT USED FOR UNKNOWN INDICATION
     Dates: end: 20110805
  10. VANCOCIN HYDROCHLORIDE [Concomitant]
     Indication: CLOSTRIDIAL INFECTION
  11. ZYRTEC [Concomitant]
     Indication: SEASONAL ALLERGY
  12. FERROUS SULFATE TAB [Concomitant]
     Indication: ANAEMIA
  13. PREDNISONE TAB [Concomitant]
     Indication: PRODUCT USED FOR UNKNOWN INDICATION
     Dosage: TAPER
  14. MERCAPTOPURINE [Concomitant]
     Indication: PRODUCT USED FOR UNKNOWN INDICATION
     Dosage: 6 DAILY
  15. HUMIRA [Suspect]
     Indication: CROHN'S DISEASE
     Dates: start: 20110804, end: 20110804
  16. CRYSTALLINE VIT B12 INJ [Concomitant]
     Indication: PRODUCT USED FOR UNKNOWN INDICATION
     Dosage: MONTHLY
     Route: 050

REACTIONS (13)
  - ANAEMIA [None]
  - VOMITING [None]
  - INJECTION SITE ERYTHEMA [None]
  - NAUSEA [None]
  - INJECTION SITE PAPULE [None]
  - WHITE BLOOD CELL COUNT DECREASED [None]
  - BLOOD TEST ABNORMAL [None]
  - INJECTION SITE PRURITUS [None]
  - FEELING ABNORMAL [None]
  - DIARRHOEA [None]
  - INJECTION SITE HAEMATOMA [None]
  - ABDOMINAL PAIN [None]
  - INJECTION SITE NODULE [None]
